FAERS Safety Report 10755314 (Version 2)
Quarter: 2015Q1

REPORT INFORMATION
  Report Type: Report from Study
  Country: US (occurrence: US)
  Receive Date: 20150202
  Receipt Date: 20150225
  Transmission Date: 20150721
  Serious: Yes (Other)
  Sender: FDA-Public Use
  Company Number: US-RECKITT BENCKISER PHARMACEUTICAL, INC-RB-075227-2015

PATIENT
  Age: 26 Year
  Sex: Female

DRUGS (1)
  1. SUBUTEX [Suspect]
     Active Substance: BUPRENORPHINE HYDROCHLORIDE
     Indication: PRODUCT USED FOR UNKNOWN INDICATION
     Dosage: ONE AND A HALF PILL A DAY
     Route: 065

REACTIONS (5)
  - Drug dependence [Unknown]
  - Bile duct obstruction [Recovered/Resolved]
  - Maternal exposure during pregnancy [Recovered/Resolved]
  - Colitis [Recovered/Resolved]
  - Vomiting in pregnancy [Recovered/Resolved]

NARRATIVE: CASE EVENT DATE: 2013
